FAERS Safety Report 20584775 (Version 1)
Quarter: 2022Q1

REPORT INFORMATION
  Report Type: Other
  Country: US (occurrence: None)
  Receive Date: 20220311
  Receipt Date: 20220311
  Transmission Date: 20220423
  Serious: Yes (Other)
  Sender: FDA-Public Use
  Company Number: US-ROCHE-3039868

PATIENT
  Sex: Female

DRUGS (2)
  1. XELODA [Suspect]
     Active Substance: CAPECITABINE
     Indication: Breast cancer female
     Dosage: UNKNOWN
     Route: 048
  2. XELODA [Suspect]
     Active Substance: CAPECITABINE
     Indication: Unevaluable event

REACTIONS (1)
  - Hepatic mass [Unknown]
